FAERS Safety Report 10207491 (Version 1)
Quarter: 2014Q2

REPORT INFORMATION
  Report Type: Spontaneous
  Country: US (occurrence: US)
  Receive Date: 20140530
  Receipt Date: 20140530
  Transmission Date: 20141212
  Serious: No
  Sender: FDA-Public Use
  Company Number: US-GILEAD-2014-0103032

PATIENT
  Age: 63 Year
  Sex: Male

DRUGS (14)
  1. SOVALDI [Suspect]
     Indication: HEPATITIS C
     Dosage: 1 DF, QD
     Route: 065
  2. RIBAPAK [Concomitant]
  3. LORAZEPAM [Concomitant]
  4. PEGASYS [Concomitant]
  5. METFORMIN [Concomitant]
  6. ASA [Concomitant]
  7. PROZAC [Concomitant]
  8. VICTOZA [Concomitant]
  9. LEVEMIR [Concomitant]
  10. VIAGRA [Concomitant]
  11. PIOGLITAZONE [Concomitant]
  12. MILK THISTLE [Concomitant]
  13. FISH OIL [Concomitant]
  14. VITAMIN D3 [Concomitant]

REACTIONS (2)
  - White blood cell count decreased [Unknown]
  - Fatigue [Unknown]
